FAERS Safety Report 12401003 (Version 2)
Quarter: 2016Q2

REPORT INFORMATION
  Report Type: Spontaneous
  Country: US (occurrence: US)
  Receive Date: 20160525
  Receipt Date: 20160525
  Transmission Date: 20160815
  Serious: Yes (Hospitalization)
  Sender: FDA-Public Use
  Company Number: US-SA-2015SA137833

PATIENT
  Age: 62 Year
  Sex: Male

DRUGS (4)
  1. NOVOLOG [Concomitant]
     Active Substance: INSULIN ASPART
  2. SOLOSTAR [Suspect]
     Active Substance: DEVICE
     Indication: TYPE 2 DIABETES MELLITUS
     Dates: start: 201301
  3. FLEXPEN [Concomitant]
     Active Substance: UNSPECIFIED INGREDIENT
  4. LANTUS SOLOSTAR [Suspect]
     Active Substance: INSULIN GLARGINE
     Indication: TYPE 2 DIABETES MELLITUS
     Dosage: DOSE:19 UNIT(S)
     Route: 065
     Dates: start: 201301

REACTIONS (3)
  - Blood glucose increased [Unknown]
  - Wrong technique in product usage process [Unknown]
  - Wrong drug administered [Unknown]
